FAERS Safety Report 20903422 (Version 3)
Quarter: 2023Q1

REPORT INFORMATION
  Report Type: Spontaneous
  Country: GB (occurrence: GB)
  Receive Date: 20220601
  Receipt Date: 20230108
  Transmission Date: 20230418
  Serious: Yes (Hospitalization, Other)
  Sender: FDA-Public Use
  Company Number: GB-MYLANLABS-2022M1032901

PATIENT
  Sex: Male

DRUGS (6)
  1. BISOPROLOL [Suspect]
     Active Substance: BISOPROLOL
     Indication: Tachycardia
     Dosage: 1.25 MILLIGRAM, ONCE A DAY (1.25 MG, QD)
     Route: 048
     Dates: start: 20201208
  2. DULOXETINE [Suspect]
     Active Substance: DULOXETINE
     Indication: Depression
     Dosage: 90 MILLIGRAM, QD
     Route: 048
     Dates: start: 20190930
  3. CLOZARIL [Suspect]
     Active Substance: CLOZAPINE
     Indication: Schizophrenia
     Dosage: 275 MILLIGRAM, ONCE A DAY (50 MG MORNING AND 225 MG AT NIGHT.)
     Route: 048
     Dates: start: 20201123, end: 20220502
  4. CLOZARIL [Suspect]
     Active Substance: CLOZAPINE
     Dosage: 225 MILLIGRAM, ONCE A DAY (HS)
     Route: 048
     Dates: start: 20220502, end: 20221129
  5. SCOPOLAMINE HYDROBROMIDE [Suspect]
     Active Substance: SCOPOLAMINE HYDROBROMIDE
     Indication: Salivary hypersecretion
     Dosage: 300 MICROGRAM, ONCE A DAY (300 UG, QD)
     Route: 061
     Dates: start: 20210413
  6. POLYETHYLENE GLYCOL 3350\POTASSIUM CHLORIDE\SODIUM BICARBONATE\SODIUM [Suspect]
     Active Substance: POLYETHYLENE GLYCOL 3350\POTASSIUM CHLORIDE\SODIUM BICARBONATE\SODIUM CHLORIDE
     Indication: Constipation
     Dosage: UNK UNK, TWO TIMES A DAY (HALF A SACHET)
     Route: 048
     Dates: start: 20201223

REACTIONS (2)
  - Aggression [Recovered/Resolved]
  - Tachycardia [Unknown]

NARRATIVE: CASE EVENT DATE: 20200101
